FAERS Safety Report 10229329 (Version 1)
Quarter: 2014Q2

REPORT INFORMATION
  Report Type: Spontaneous
  Country: US (occurrence: US)
  Receive Date: 20140611
  Receipt Date: 20140611
  Transmission Date: 20141212
  Serious: Yes (Hospitalization, Other)
  Sender: FDA-Public Use
  Company Number: US-AMGEN-USASP2014041634

PATIENT
  Age: 71 Year
  Sex: Female

DRUGS (6)
  1. PROLIA [Suspect]
     Indication: OSTEOPOROSIS
     Dosage: UNK
     Route: 065
     Dates: start: 201401
  2. ZOLOFT [Concomitant]
  3. AMITRIPTYLINE [Concomitant]
     Indication: NEURALGIA
  4. MORPHINE [Concomitant]
  5. NORCO [Concomitant]
  6. LIPITOR [Concomitant]

REACTIONS (15)
  - Urinary tract infection [Unknown]
  - Multiple fractures [Unknown]
  - Wrist fracture [Unknown]
  - Foot fracture [Unknown]
  - Fall [Unknown]
  - Dysphonia [Unknown]
  - Overdose [Recovering/Resolving]
  - Abdominal discomfort [Unknown]
  - Neuralgia [Unknown]
  - Gait disturbance [Unknown]
  - Dysphagia [Unknown]
  - Pain [Unknown]
  - Back pain [Unknown]
  - Hypoaesthesia [Unknown]
  - Pain in extremity [Unknown]
